FAERS Safety Report 23622635 (Version 1)
Quarter: 2024Q1

REPORT INFORMATION
  Report Type: Spontaneous
  Country: US (occurrence: None)
  Receive Date: 20240311
  Receipt Date: 20240311
  Transmission Date: 20240409
  Serious: Yes (Hospitalization)
  Sender: FDA-Public Use
  Company Number: None

PATIENT
  Age: 70 Year
  Sex: Male
  Weight: 104 kg

DRUGS (1)
  1. OBINUTUZUMAB [Suspect]
     Active Substance: OBINUTUZUMAB

REACTIONS (3)
  - Pyrexia [None]
  - Hepatitis B reactivation [None]
  - Hepatitis B virus test positive [None]

NARRATIVE: CASE EVENT DATE: 20240201
